FAERS Safety Report 6933806-5 (Version None)
Quarter: 2010Q3

REPORT INFORMATION
  Report Type: 
  Country: None (occurrence: None)
  Receive Date: 20100820
  Receipt Date: 20100812
  Transmission Date: 20110219
  Serious: Yes (Death)
  Sender: FDA-Public Use
  Company Number: US-EISAI INC.-E7867-00137-SPO-US

PATIENT
  Age: 75 Year
  Sex: Female

DRUGS (1)
  1. GLIADEL [Suspect]
     Dosage: UNKNOWN
     Route: 018

REACTIONS (1)
  - MULTI-ORGAN FAILURE [None]
